FAERS Safety Report 4377220-8 (Version None)
Quarter: 2004Q2

REPORT INFORMATION
  Report Type: 
  Country: None (occurrence: None)
  Receive Date: 20040608
  Receipt Date: 20040525
  Transmission Date: 20050107
  Serious: Yes (Hospitalization)
  Sender: FDA-Public Use
  Company Number: 2004215677DE

PATIENT
  Age: 47 Year
  Sex: Female
  Weight: 87 kg

DRUGS (2)
  1. EPIRUBICIN [Suspect]
     Indication: BREAST CANCER
     Dosage: UNK, CYCLIC, UNK
     Dates: start: 20040408, end: 20040408
  2. COMPARATOR-DOCETAXEL (DOCETAXEL) INJECTION [Suspect]
     Indication: BREAST CANCER
     Dosage: 200 MG, CYCLIC, IV
     Route: 042
     Dates: start: 20040429, end: 20040429

REACTIONS (3)
  - BACK PAIN [None]
  - COMPRESSION FRACTURE [None]
  - FALL [None]
